FAERS Safety Report 10393058 (Version 2)
Quarter: 2014Q3

REPORT INFORMATION
  Report Type: Report from Study
  Country: US (occurrence: US)
  Receive Date: 20140819
  Receipt Date: 20140819
  Transmission Date: 20150326
  Serious: Yes (Other)
  Sender: FDA-Public Use
  Company Number: US-BAYER-2014-063450

PATIENT
  Age: 71 Year
  Sex: Male

DRUGS (4)
  1. STIVARGA [Suspect]
     Active Substance: REGORAFENIB
     Indication: RECTAL CANCER
     Dosage: 3 X 40 MG
     Route: 048
     Dates: start: 20140410, end: 20140628
  2. STIVARGA [Suspect]
     Active Substance: REGORAFENIB
     Indication: RECTAL CANCER
     Dosage: 4 X 40 MG
     Route: 048
     Dates: start: 20140411
  3. STIVARGA [Suspect]
     Active Substance: REGORAFENIB
     Indication: RECTAL CANCER
     Dosage: 4 X 40 MG
     Route: 048
     Dates: start: 2014
  4. STIVARGA [Suspect]
     Active Substance: REGORAFENIB
     Indication: RECTAL CANCER
     Dosage: 3 X 40 MG
     Dates: start: 20140421, end: 201407

REACTIONS (15)
  - Coordination abnormal [None]
  - Hypertension [None]
  - Weight decreased [None]
  - Fatigue [None]
  - Neuropathy peripheral [None]
  - Hypoaesthesia [None]
  - Local swelling [None]
  - Pain in extremity [None]
  - Respiratory disorder [None]
  - Respiratory tract infection [None]
  - Chest discomfort [None]
  - Insomnia [None]
  - Blister infected [None]
  - Fall [None]
  - Localised infection [None]

NARRATIVE: CASE EVENT DATE: 201404
